FAERS Safety Report 25577004 (Version 2)
Quarter: 2025Q4

REPORT INFORMATION
  Report Type: Spontaneous
  Country: JP (occurrence: JP)
  Receive Date: 20250718
  Receipt Date: 20251030
  Transmission Date: 20260118
  Serious: Yes (Other)
  Sender: MERCK SHARP & DOHME LLC
  Company Number: JP-009507513-2309458

PATIENT
  Age: 60 Year
  Sex: Female

DRUGS (3)
  1. KEYTRUDA [Suspect]
     Active Substance: PEMBROLIZUMAB
     Indication: Squamous cell carcinoma of the cervix
     Route: 042
  2. TETRACYCLINE HYDROCHLORIDE [Suspect]
     Active Substance: TETRACYCLINE HYDROCHLORIDE
     Indication: Squamous cell carcinoma of the cervix
     Dosage: TIME INTERVAL: CYCLICAL
     Route: 065
  3. TETRACYCLINE HYDROCHLORIDE [Suspect]
     Active Substance: TETRACYCLINE HYDROCHLORIDE
     Indication: Squamous cell carcinoma of the cervix
     Dosage: TIME INTERVAL: CYCLICAL
     Route: 065

REACTIONS (3)
  - Carcinoembryonic antigen increased [Unknown]
  - Squamous cell carcinoma antigen increased [Unknown]
  - Carbohydrate antigen 125 increased [Unknown]
